FAERS Safety Report 9791204 (Version 1)
Quarter: 2013Q4

REPORT INFORMATION
  Report Type: Report from Study
  Country: US (occurrence: US)
  Receive Date: 20131231
  Receipt Date: 20131231
  Transmission Date: 20140711
  Serious: Yes (Death)
  Sender: FDA-Public Use
  Company Number: US-ROCHE-1328139

PATIENT
  Age: 45 Year
  Sex: Male

DRUGS (2)
  1. XELODA [Suspect]
     Indication: PRODUCT USED FOR UNKNOWN INDICATION
     Dosage: 2 TABLETS ONCE A DAY, 7 DAYS ON, 7 DAYS OFF
     Route: 065
  2. XELODA [Suspect]
     Dosage: 3 TABLETS ONCE A DAY, 7 DAYS ON, 7 DAYS OFF
     Route: 065

REACTIONS (1)
  - Death [Fatal]
